FAERS Safety Report 13462090 (Version 8)
Quarter: 2021Q2

REPORT INFORMATION
  Report Type: Report from Study
  Country: JP (occurrence: JP)
  Receive Date: 20170420
  Receipt Date: 20210526
  Transmission Date: 20210716
  Serious: Yes (Hospitalization, Other)
  Sender: FDA-Public Use
  Company Number: JP-AEGERION PHARMACEUTICAL, INC-AEGR003026

PATIENT

DRUGS (13)
  1. EVINACUMAB. [Concomitant]
     Active Substance: EVINACUMAB
     Dosage: ACTIVE DRUG (1 IN 1 M)
     Route: 013
     Dates: start: 20190509
  2. NIKORANMART [Concomitant]
     Active Substance: NICORANDIL
     Indication: MYOCARDIAL ISCHAEMIA
     Dosage: 5 MG, TID
     Route: 048
     Dates: start: 20170424
  3. JUXTAPID [Suspect]
     Active Substance: LOMITAPIDE MESYLATE
     Dosage: 5 MG,OVER 2 HOURS AFTER DINNER
     Route: 048
     Dates: start: 20100207, end: 20180621
  4. JUXTAPID [Suspect]
     Active Substance: LOMITAPIDE MESYLATE
     Dosage: 5 MG, OVER 2 HOURS AFTER DINNER, 5 DAYS PER WEEK
     Route: 048
     Dates: start: 20170510
  5. JUXTAPID [Suspect]
     Active Substance: LOMITAPIDE MESYLATE
     Indication: TYPE IIA HYPERLIPIDAEMIA
     Dosage: 5 MG, OVER 2 HRS AFTER DINNER
     Route: 048
     Dates: start: 20161228, end: 20170208
  6. ZETIA [Concomitant]
     Active Substance: EZETIMIBE
     Indication: HYPERCHOLESTEROLAEMIA
     Dosage: 10 MG, QD
     Route: 048
     Dates: start: 20161121, end: 20170821
  7. JUXTAPID [Suspect]
     Active Substance: LOMITAPIDE MESYLATE
     Dosage: 5 MG, OVER 2 HOURS AFTER DINNER, ALTERNATE DAYS
     Route: 048
     Dates: start: 20170308
  8. JUXTAPID [Suspect]
     Active Substance: LOMITAPIDE MESYLATE
     Dosage: 5 MG,OVER 2 HOURS AFTER DINNER
     Dates: start: 20170912, end: 20171120
  9. EPADEL?S [Concomitant]
     Active Substance: ICOSAPENT ETHYL
     Indication: HYPERCHOLESTEROLAEMIA
     Dosage: 900 MG, BID
     Route: 048
     Dates: start: 20130302, end: 20170904
  10. EFIENT [Concomitant]
     Active Substance: PRASUGREL HYDROCHLORIDE
     Indication: MYOCARDIAL ISCHAEMIA
     Dosage: 3.75 MG, QD
     Route: 048
     Dates: start: 20170712
  11. ZETIA [Concomitant]
     Active Substance: EZETIMIBE
     Route: 048
     Dates: start: 20161121, end: 20170821
  12. BAYASPIRIN [Concomitant]
     Active Substance: ASPIRIN
     Indication: MYOCARDIAL ISCHAEMIA
     Dosage: 100 MG, QD
     Route: 048
     Dates: start: 20170424
  13. EVINACUMAB. [Concomitant]
     Active Substance: EVINACUMAB
     Indication: HYPERCHOLESTEROLAEMIA
     Dosage: POSSIBILITY OF PLACEBO (1 IN 1 M)
     Route: 013
     Dates: start: 20181122, end: 20190411

REACTIONS (10)
  - Aspartate aminotransferase increased [Recovering/Resolving]
  - Pruritus [Recovered/Resolved]
  - Pruritus [Recovering/Resolving]
  - Pruritus [Not Recovered/Not Resolved]
  - Alanine aminotransferase increased [Recovering/Resolving]
  - Myocardial ischaemia [Recovering/Resolving]
  - Alanine aminotransferase increased [Recovered/Resolved]
  - Inappropriate schedule of product administration [Unknown]
  - Pruritus [Recovered/Resolved]
  - Alanine aminotransferase increased [Recovering/Resolving]

NARRATIVE: CASE EVENT DATE: 20170125
